FAERS Safety Report 6217268-1 (Version None)
Quarter: 2009Q2

REPORT INFORMATION
  Report Type: 
  Country: None (occurrence: None)
  Receive Date: 20090604
  Receipt Date: 20090604
  Transmission Date: 20091009
  Serious: No
  Sender: FDA-Public Use
  Company Number: None

PATIENT
  Age: 48 Year
  Sex: Male
  Weight: 82.1 kg

DRUGS (1)
  1. LEVETIRACETAM [Suspect]
     Indication: CONVULSION
     Dates: start: 20081215, end: 20090515

REACTIONS (5)
  - AURA [None]
  - DIZZINESS [None]
  - FEELING JITTERY [None]
  - PRODUCT SUBSTITUTION ISSUE [None]
  - SIMPLE PARTIAL SEIZURES [None]
